FAERS Safety Report 24397935 (Version 2)
Quarter: 2024Q4

REPORT INFORMATION
  Report Type: Spontaneous
  Country: ES (occurrence: ES)
  Receive Date: 20241004
  Receipt Date: 20241024
  Transmission Date: 20250115
  Serious: Yes (Other)
  Sender: Vantive US Healthcare
  Company Number: ES-VANTIVE-2024VAN019984

PATIENT
  Sex: Female

DRUGS (1)
  1. ANHYDROUS DEXTROSE\CALCIUM CHLORIDE\MAGNESIUM CHLORIDE\SODIUM BICARBON [Suspect]
     Active Substance: ANHYDROUS DEXTROSE\CALCIUM CHLORIDE\MAGNESIUM CHLORIDE\SODIUM BICARBONATE\SODIUM CHLORIDE\SODIUM LAC
     Route: 033

REACTIONS (4)
  - Peritonitis [Not Recovered/Not Resolved]
  - Poor quality product administered [Unknown]
  - Product container issue [Unknown]
  - Product outer packaging issue [Unknown]
